FAERS Safety Report 18570382 (Version 1)
Quarter: 2020Q4

REPORT INFORMATION
  Report Type: Spontaneous
  Country: US (occurrence: US)
  Receive Date: 20201202
  Receipt Date: 20201202
  Transmission Date: 20210114
  Serious: Yes (Other)
  Sender: FDA-Public Use
  Company Number: None

PATIENT
  Age: 68 Year
  Sex: Male
  Weight: 90.27 kg

DRUGS (17)
  1. TRETINOIN. [Suspect]
     Active Substance: TRETINOIN
     Indication: ACUTE PROMYELOCYTIC LEUKAEMIA
     Route: 048
     Dates: start: 20201109
  2. FINASTERIDE. [Concomitant]
     Active Substance: FINASTERIDE
  3. TAMSULOSIN [Concomitant]
     Active Substance: TAMSULOSIN
  4. COREG [Concomitant]
     Active Substance: CARVEDILOL
  5. XARELTO [Concomitant]
     Active Substance: RIVAROXABAN
  6. ESOMEPRAZOLE. [Concomitant]
     Active Substance: ESOMEPRAZOLE MAGNESIUM
  7. FOLIC ACID. [Concomitant]
     Active Substance: FOLIC ACID
  8. TRISENOX [Concomitant]
     Active Substance: ARSENIC TRIOXIDE
  9. KEFLEX [Concomitant]
     Active Substance: CEPHALEXIN
  10. DUTASTERIDE. [Concomitant]
     Active Substance: DUTASTERIDE
  11. PANTOPRAZOLE [Concomitant]
     Active Substance: PANTOPRAZOLE
  12. ZOFRAN [Concomitant]
     Active Substance: ONDANSETRON HYDROCHLORIDE
  13. ACYCLOVIR. [Concomitant]
     Active Substance: ACYCLOVIR
  14. ROSUVASTATIN. [Concomitant]
     Active Substance: ROSUVASTATIN
  15. SENNA TABS [Concomitant]
     Active Substance: SENNOSIDES A AND B
  16. PREDNISONE. [Concomitant]
     Active Substance: PREDNISONE
  17. EZETIMIBE. [Concomitant]
     Active Substance: EZETIMIBE

REACTIONS (1)
  - Rash [None]

NARRATIVE: CASE EVENT DATE: 20201202
